FAERS Safety Report 19187545 (Version 3)
Quarter: 2021Q3

REPORT INFORMATION
  Report Type: Report from Study
  Country: None (occurrence: US)
  Receive Date: 20210427
  Receipt Date: 20210727
  Transmission Date: 20211014
  Serious: Yes (Other)
  Sender: FDA-Public Use
  Company Number: US-ABBVIE-21K-163-3873933-00

PATIENT
  Sex: Female

DRUGS (3)
  1. COSENTYX [Concomitant]
     Active Substance: SECUKINUMAB
     Indication: PRODUCT USED FOR UNKNOWN INDICATION
  2. HUMIRA [Suspect]
     Active Substance: ADALIMUMAB
     Indication: CROHN^S DISEASE
     Route: 058
     Dates: start: 202103
  3. HUMIRA [Suspect]
     Active Substance: ADALIMUMAB
     Indication: PSORIATIC ARTHROPATHY
     Route: 058
     Dates: end: 202007

REACTIONS (13)
  - Lung disorder [Unknown]
  - Off label use [Unknown]
  - Myalgia [Recovering/Resolving]
  - Gait disturbance [Recovered/Resolved]
  - Loss of personal independence in daily activities [Recovering/Resolving]
  - Joint range of motion decreased [Recovered/Resolved]
  - Musculoskeletal stiffness [Unknown]
  - Burning sensation [Recovered/Resolved]
  - Drug ineffective [Unknown]
  - Pain [Unknown]
  - Grip strength decreased [Recovered/Resolved]
  - Arthralgia [Recovering/Resolving]
  - Mobility decreased [Recovered/Resolved]

NARRATIVE: CASE EVENT DATE: 2020
